FAERS Safety Report 13147967 (Version 5)
Quarter: 2017Q2

REPORT INFORMATION
  Report Type: Spontaneous
  Country: PT (occurrence: PT)
  Receive Date: 20170125
  Receipt Date: 20170420
  Transmission Date: 20170830
  Serious: Yes (Death, Hospitalization)
  Sender: FDA-Public Use
  Company Number: PT-ROCHE-1884205

PATIENT
  Age: 75 Year
  Sex: Male
  Weight: 87 kg

DRUGS (5)
  1. HERCEPTIN [Suspect]
     Active Substance: TRASTUZUMAB
     Indication: GASTRIC CANCER
     Route: 042
     Dates: start: 20170118, end: 20170118
  2. DEXAMETHASONE. [Concomitant]
     Active Substance: DEXAMETHASONE
     Dosage: SINGLE ADMINISTRATION
     Route: 042
     Dates: start: 20170118, end: 20170118
  3. POTASSIUM CHLORIDE. [Concomitant]
     Active Substance: POTASSIUM CHLORIDE
     Dosage: SINGLE ADMINISTRATION
     Route: 042
     Dates: start: 20170118, end: 20170118
  4. ONDANSETRON [Concomitant]
     Active Substance: ONDANSETRON
     Dosage: SINGLE ADMINISTRATION
     Route: 042
     Dates: start: 20170118, end: 20170118
  5. RANITIDINE. [Concomitant]
     Active Substance: RANITIDINE
     Dosage: SINGLE ADMINISTRATION
     Route: 042
     Dates: start: 20170118, end: 20170118

REACTIONS (3)
  - Hyperthermia [Recovered/Resolved]
  - Tremor [Recovered/Resolved]
  - Death [Fatal]

NARRATIVE: CASE EVENT DATE: 20170118
